FAERS Safety Report 15375029 (Version 4)
Quarter: 2018Q4

REPORT INFORMATION
  Report Type: Report from Study
  Country: US (occurrence: US)
  Receive Date: 20180912
  Receipt Date: 20181106
  Transmission Date: 20190204
  Serious: Yes (Hospitalization, Other)
  Sender: FDA-Public Use
  Company Number: US-GILEAD-2018-0362240

PATIENT
  Age: 54 Year
  Sex: Female
  Weight: 124.72 kg

DRUGS (23)
  1. AMBRISENTAN [Suspect]
     Active Substance: AMBRISENTAN
     Indication: CONNECTIVE TISSUE DISORDER
  2. SPIRIVA [Concomitant]
     Active Substance: TIOTROPIUM BROMIDE MONOHYDRATE
  3. GABAPENTIN. [Concomitant]
     Active Substance: GABAPENTIN
  4. CETIRIZIN [Concomitant]
     Active Substance: CETIRIZINE HYDROCHLORIDE
  5. DEXAMETHASONE. [Concomitant]
     Active Substance: DEXAMETHASONE
  6. LOSARTAN. [Concomitant]
     Active Substance: LOSARTAN
  7. SINGULAIR [Concomitant]
     Active Substance: MONTELUKAST SODIUM
  8. SPIRONOLACTON [Concomitant]
     Active Substance: SPIRONOLACTONE
  9. AMBRISENTAN [Suspect]
     Active Substance: AMBRISENTAN
     Indication: PULMONARY ARTERIAL HYPERTENSION
     Dosage: 10 MG, QD
     Route: 048
     Dates: start: 20180504
  10. ALBUTEROL HFA [Concomitant]
     Active Substance: ALBUTEROL SULFATE
  11. FAMOTIDIN [Concomitant]
  12. ADVAIR HFA [Concomitant]
     Active Substance: FLUTICASONE PROPIONATE\SALMETEROL XINAFOATE
  13. ASA [Concomitant]
     Active Substance: ASPIRIN
  14. KCL [Concomitant]
     Active Substance: POTASSIUM CHLORIDE
  15. AMBRISENTAN [Suspect]
     Active Substance: AMBRISENTAN
     Indication: LUNG DISORDER
  16. ACETAMINOPHEN. [Concomitant]
     Active Substance: ACETAMINOPHEN
  17. METHOCARBAMOL. [Concomitant]
     Active Substance: METHOCARBAMOL
  18. AMBRISENTAN [Suspect]
     Active Substance: AMBRISENTAN
     Indication: HEART DISEASE CONGENITAL
  19. ACICLOVIR [Concomitant]
     Active Substance: ACYCLOVIR
  20. LEXAPRO [Concomitant]
     Active Substance: ESCITALOPRAM OXALATE
  21. NORCO [Concomitant]
     Active Substance: ACETAMINOPHEN\HYDROCODONE BITARTRATE
  22. LORAZEPAM. [Concomitant]
     Active Substance: LORAZEPAM
  23. WARFARIN [Concomitant]
     Active Substance: WARFARIN

REACTIONS (8)
  - Bronchitis [Recovered/Resolved]
  - Dyspnoea [Recovered/Resolved]
  - Dyspnoea exertional [Recovering/Resolving]
  - Off label use [Not Recovered/Not Resolved]
  - Breast cellulitis [Unknown]
  - Pneumonitis [Recovered/Resolved]
  - Oedema [Recovering/Resolving]
  - Acute respiratory failure [Recovered/Resolved]

NARRATIVE: CASE EVENT DATE: 20180805
